FAERS Safety Report 6414239-7 (Version None)
Quarter: 2009Q4

REPORT INFORMATION
  Report Type: 
  Country: None (occurrence: None)
  Receive Date: 20091026
  Receipt Date: 20091015
  Transmission Date: 20100525
  Serious: Yes (Hospitalization)
  Sender: FDA-Public Use
  Company Number: FR-SANOFI-SYNTHELABO-A02200902677

PATIENT
  Sex: Male

DRUGS (10)
  1. CONTRAMAL [Concomitant]
     Indication: DRUG USE FOR UNKNOWN INDICATION
     Route: 048
     Dates: end: 20090909
  2. MABTHERA [Concomitant]
     Indication: DRUG USE FOR UNKNOWN INDICATION
     Route: 042
     Dates: start: 20090904, end: 20090905
  3. ETOPOSIDE [Concomitant]
     Indication: DRUG USE FOR UNKNOWN INDICATION
     Route: 042
     Dates: start: 20090907, end: 20090908
  4. SOLU-MEDROL [Concomitant]
     Indication: DRUG USE FOR UNKNOWN INDICATION
     Route: 042
     Dates: start: 20090901, end: 20090903
  5. SOLU-MEDROL [Concomitant]
     Route: 042
     Dates: start: 20090904, end: 20090904
  6. EMEND [Interacting]
     Indication: DRUG USE FOR UNKNOWN INDICATION
     Route: 048
     Dates: start: 20090907, end: 20090907
  7. EMEND [Interacting]
     Route: 048
     Dates: start: 20090908, end: 20090909
  8. HOLOXAN [Interacting]
     Indication: DRUG USE FOR UNKNOWN INDICATION
     Route: 041
     Dates: start: 20090908, end: 20090909
  9. FASTURTEC [Suspect]
     Indication: DRUG USE FOR UNKNOWN INDICATION
     Route: 042
     Dates: start: 20090901, end: 20090902
  10. FASTURTEC [Interacting]
     Route: 042
     Dates: start: 20090905, end: 20090906

REACTIONS (2)
  - ENCEPHALOPATHY [None]
  - PANCYTOPENIA [None]
